FAERS Safety Report 14373367 (Version 1)
Quarter: 2018Q1

REPORT INFORMATION
  Report Type: Spontaneous
  Country: ES (occurrence: ES)
  Receive Date: 20180110
  Receipt Date: 20180110
  Transmission Date: 20180509
  Serious: Yes (Life-Threatening, Hospitalization)
  Sender: FDA-Public Use
  Company Number: ES-PFIZER INC-2018011942

PATIENT
  Age: 75 Year
  Sex: Male

DRUGS (14)
  1. ORFIDAL [Concomitant]
     Active Substance: LORAZEPAM
     Dosage: 1 MG, UNK (50 COMPRIMIDOS)
     Dates: start: 20150519
  2. HEMOVAS [Concomitant]
     Dosage: 400 MG, UNK (60 COMPRIMIDOS)
     Dates: start: 20140620
  3. ADIRO [Concomitant]
     Active Substance: ASPIRIN
     Dosage: 100 MG, UNK (30 COMPRIMIDOS)
     Dates: start: 20171213
  4. ADALAT [Concomitant]
     Active Substance: NIFEDIPINE
     Dosage: 30 MG, UNK
     Dates: start: 20161027
  5. NITRODERM [Concomitant]
     Active Substance: NITROGLYCERIN
     Dosage: 10 DF, UNK (30 PATCHES)
     Dates: start: 20160720
  6. EMCONCOR [Concomitant]
     Active Substance: BISOPROLOL FUMARATE
     Dosage: 2.5 MG, UNK
     Dates: start: 20140620
  7. DILIBAN [Concomitant]
     Active Substance: ACETAMINOPHEN\TRAMADOL HYDROCHLORIDE
     Dosage: UNK (75 MG/650 MG COMPRIMIDOS)
     Dates: start: 20171120
  8. DELTIUS [Suspect]
     Active Substance: CHOLECALCIFEROL
     Dosage: UNK
     Route: 048
     Dates: start: 20170310
  9. PLAVIX [Concomitant]
     Active Substance: CLOPIDOGREL BISULFATE
     Dosage: 75 MG, UNK
     Dates: start: 20100323, end: 20171213
  10. RANITIDINE. [Concomitant]
     Active Substance: RANITIDINE
     Dosage: 300 MG, UNK
     Dates: start: 20130523
  11. ORVATEZ [Concomitant]
     Active Substance: ATORVASTATIN CALCIUM\EZETIMIBE
     Dosage: UNK (10 MG/40 MG)
     Dates: start: 20160617
  12. FUROSEMIDA [Concomitant]
     Active Substance: FUROSEMIDE
     Dosage: 40 MG, UNK
     Dates: start: 20160527
  13. AMIODARONE HCL [Suspect]
     Active Substance: AMIODARONE HYDROCHLORIDE
     Dosage: 200 MG, DAILY
     Route: 048
     Dates: start: 20140626, end: 20171123
  14. ENALAPRIL [Concomitant]
     Active Substance: ENALAPRIL
     Dosage: UNK
     Dates: start: 20160617

REACTIONS (1)
  - Thyroiditis [Recovered/Resolved]

NARRATIVE: CASE EVENT DATE: 201711
